FAERS Safety Report 21870633 (Version 1)
Quarter: 2023Q1

REPORT INFORMATION
  Report Type: Spontaneous
  Country: None (occurrence: GR)
  Receive Date: 20230117
  Receipt Date: 20230117
  Transmission Date: 20230418
  Serious: Yes (Life-Threatening, Hospitalization, Other)
  Sender: FDA-Public Use
  Company Number: GR-Therakind Limited-2136770

PATIENT
  Age: 58 Year
  Sex: Male

DRUGS (3)
  1. METHOTREXATE SODIUM [Suspect]
     Active Substance: METHOTREXATE SODIUM
     Indication: Still^s disease
  2. METHYLPREDNISOLONE [Suspect]
     Active Substance: METHYLPREDNISOLONE
  3. ANAKINRA [Suspect]
     Active Substance: ANAKINRA

REACTIONS (9)
  - Septic shock [Recovered/Resolved]
  - Atrioventricular block complete [Recovered/Resolved]
  - Fungaemia [Recovered/Resolved]
  - Off label use [Unknown]
  - Staphylococcal bacteraemia [Recovered/Resolved]
  - Staphylococcal sepsis [Recovered/Resolved]
  - Bacteraemia [Recovered/Resolved]
  - Candida infection [Recovered/Resolved]
  - Condition aggravated [Recovered/Resolved]
